FAERS Safety Report 8014137 (Version 6)
Quarter: 2012Q4

REPORT INFORMATION
  Report Type: Report from Study
  Country: AU (occurrence: AU)
  Receive Date: 20110629
  Receipt Date: 20121128
  Transmission Date: 20130627
  Serious: Yes (Life-Threatening, Hospitalization)
  Sender: FDA-Public Use
  Company Number: AU-JNJFOC-20110611951

PATIENT
  Age: 23 Year
  Sex: Male
  Weight: 77 kg

DRUGS (5)
  1. INVEGA SUSTENNA [Suspect]
     Indication: SCHIZOPHRENIA
     Route: 030
     Dates: start: 20110303, end: 20110602
  2. INVEGA SUSTENNA [Suspect]
     Indication: SCHIZOPHRENIA
     Route: 030
  3. ALCOHOL [Suspect]
     Indication: PRODUCT USED FOR UNKNOWN INDICATION
  4. SODIUM VALPROATE [Concomitant]
     Indication: AFFECTIVE DISORDER
     Dates: start: 20110301
  5. PALIPERIDONE [Concomitant]
     Indication: HALLUCINATION, AUDITORY
     Route: 048
     Dates: start: 20110412, end: 20110603

REACTIONS (2)
  - Schizophrenia [Unknown]
  - Suicide attempt [Unknown]
